FAERS Safety Report 23895860 (Version 3)
Quarter: 2024Q3

REPORT INFORMATION
  Report Type: Spontaneous
  Country: US (occurrence: US)
  Receive Date: 20240524
  Receipt Date: 20240701
  Transmission Date: 20241016
  Serious: Yes (Hospitalization)
  Sender: BRISTOL MYERS SQUIBB
  Company Number: US-BRISTOL-MYERS SQUIBB COMPANY-2024-077741

PATIENT
  Age: 69 Year
  Sex: Female

DRUGS (2)
  1. LENALIDOMIDE [Suspect]
     Active Substance: LENALIDOMIDE
     Indication: Plasma cell myeloma
     Dosage: TAKE 1 CAPSULE BY MOUTH DAILY ON DAYS 1-21 OF A 28 DAY CYCLE. TAKE WHOLE W/WATER. DO NOT BREAK, CHEW
     Route: 048
  2. LENALIDOMIDE [Suspect]
     Active Substance: LENALIDOMIDE
     Dosage: TAKE 1 CAPSULE BY MOUTH DAILY ON DAYS 1-21 OF A 28 DAY CYCLE. TAKE WHOLE W/WATER. DO NOT BREAK, CHEW
     Route: 048

REACTIONS (4)
  - Musculoskeletal disorder [Recovering/Resolving]
  - Muscular weakness [Unknown]
  - Infusion related reaction [Recovering/Resolving]
  - Calcium deficiency [Unknown]
